FAERS Safety Report 6288334-X (Version None)
Quarter: 2009Q3

REPORT INFORMATION
  Report Type: 
  Country: None (occurrence: None)
  Receive Date: 20090729
  Receipt Date: 20090619
  Transmission Date: 20100115
  Serious: Yes (Hospitalization)
  Sender: FDA-Public Use
  Company Number: PHHO2005AU08869

PATIENT
  Sex: Male

DRUGS (13)
  1. NEORAL [Suspect]
     Indication: RENAL TRANSPLANT
     Dosage: 225 MG, BID
     Route: 048
     Dates: start: 20041025
  2. NEORAL [Suspect]
     Dosage: 100 MG, BID
     Route: 048
  3. NEORAL [Suspect]
     Dosage: 175 MG, BID
     Route: 048
     Dates: end: 20041121
  4. PREDNISONE [Suspect]
     Indication: RENAL TRANSPLANT
     Dosage: 20 MG/DAY
     Route: 048
     Dates: start: 20041120
  5. SIROLIMUS [Suspect]
     Indication: RENAL TRANSPLANT
     Dosage: 2 MG/DAY
     Route: 048
     Dates: start: 20041121
  6. MYCOPHENOLATE MOFETIL [Concomitant]
     Indication: RENAL TRANSPLANT
     Dosage: 1000 MG, BID
     Route: 048
     Dates: start: 20041016
  7. MYCOPHENOLATE MOFETIL [Concomitant]
     Dosage: 1000 MG, TID
     Route: 048
  8. NYSTATIN [Concomitant]
     Dates: start: 20041016
  9. RESPRIM [Concomitant]
     Dates: start: 20041016
  10. VALGANCICLOVIR HCL [Concomitant]
     Dates: start: 20041016
  11. ATENOLOL [Concomitant]
     Dates: start: 20040306
  12. FELODIPINE [Concomitant]
     Dates: start: 20020101
  13. ATORVASTATIN [Concomitant]

REACTIONS (5)
  - ABDOMINAL DISTENSION [None]
  - BLOOD CREATININE INCREASED [None]
  - ILEUS [None]
  - LYMPHOCELE [None]
  - NEPHROPATHY TOXIC [None]
